FAERS Safety Report 11525987 (Version 3)
Quarter: 2015Q4

REPORT INFORMATION
  Report Type: Report from Study
  Country: US (occurrence: US)
  Receive Date: 20150918
  Receipt Date: 20151217
  Transmission Date: 20160304
  Serious: Yes (Hospitalization, Other)
  Sender: FDA-Public Use
  Company Number: US-GILEAD-2015-0172990

PATIENT
  Age: 15 Year
  Sex: Female

DRUGS (3)
  1. AZTREONAM LYSINE [Suspect]
     Active Substance: AZTREONAM LYSINE
     Indication: CYSTIC FIBROSIS
     Dosage: UNK, REPORTED AS ^NA^
     Route: 055
  2. AZTREONAM LYSINE [Suspect]
     Active Substance: AZTREONAM LYSINE
     Indication: IMMUNE SYSTEM DISORDER
     Dosage: 75 MG, TID
     Route: 055
     Dates: start: 20150921
  3. AZTREONAM LYSINE [Suspect]
     Active Substance: AZTREONAM LYSINE
     Dosage: UNK
     Route: 065
     Dates: start: 20151112, end: 20151126

REACTIONS (2)
  - Staphylococcal infection [Unknown]
  - Pseudomonas infection [Unknown]
